FAERS Safety Report 19229086 (Version 1)
Quarter: 2021Q2

REPORT INFORMATION
  Report Type: Not Available
  Country: None (occurrence: None)
  Receive Date: 20210506
  Receipt Date: 20210506
  Transmission Date: 20210717
  Serious: Yes (Other)
  Sender: FDA-Public Use
  Company Number: US-AKORN-165995

PATIENT
  Age: 22 Year
  Sex: Female

DRUGS (1)
  1. MYORISAN [Suspect]
     Active Substance: ISOTRETINOIN

REACTIONS (9)
  - Depression [Unknown]
  - Nausea [Unknown]
  - Vomiting [Unknown]
  - Dry skin [Unknown]
  - Mood altered [Unknown]
  - Off label use [Recovered/Resolved]
  - Blood urine present [Unknown]
  - Diarrhoea [Unknown]
  - Fatigue [Unknown]
